FAERS Safety Report 6743544-X (Version None)
Quarter: 2010Q2

REPORT INFORMATION
  Report Type: 
  Country: None (occurrence: None)
  Receive Date: 20100527
  Receipt Date: 20100521
  Transmission Date: 20101027
  Serious: Yes (Hospitalization)
  Sender: FDA-Public Use
  Company Number: JP-ROCHE-685118

PATIENT
  Age: 62 Year
  Sex: Female

DRUGS (21)
  1. VALGANCICLOVIR HCL [Suspect]
     Indication: CYTOMEGALOVIRUS INFECTION
     Route: 048
     Dates: start: 20090825, end: 20090908
  2. PROGRAF [Suspect]
     Route: 041
     Dates: end: 20090830
  3. PROGRAF [Suspect]
     Route: 041
     Dates: start: 20090831, end: 20090831
  4. PROGRAF [Suspect]
     Route: 041
     Dates: start: 20090901, end: 20090903
  5. PROGRAF [Suspect]
     Route: 041
     Dates: start: 20090904, end: 20090904
  6. PROGRAF [Suspect]
     Route: 041
     Dates: start: 20090905, end: 20090905
  7. PROGRAF [Suspect]
     Route: 041
     Dates: start: 20090906, end: 20090906
  8. PROGRAF [Suspect]
     Route: 041
     Dates: start: 20090907
  9. GATIFLOXACIN [Concomitant]
     Dosage: DAILY DOSE: FEW DROPS
     Route: 031
  10. PARIET [Concomitant]
     Route: 048
  11. URSO 250 [Concomitant]
     Dosage: URSO TABLETS 50MG
     Route: 048
  12. ZOSYN [Concomitant]
     Route: 041
     Dates: end: 20090902
  13. HUMULIN R [Concomitant]
     Dosage: DAILY DOSE: 16 IU
     Route: 041
     Dates: end: 20090831
  14. FUNGUARD [Concomitant]
     Route: 041
  15. AMIKACIN SULFATE [Concomitant]
     Route: 041
     Dates: end: 20090908
  16. BENAMBAX [Concomitant]
     Route: 055
  17. SODIUM CHLORIDE [Concomitant]
     Route: 042
     Dates: end: 20090831
  18. POTASSIUM CHLORIDE [Concomitant]
     Route: 041
     Dates: end: 20090831
  19. MYSLEE [Concomitant]
     Route: 048
     Dates: start: 20090826, end: 20090901
  20. GLOVENIN-I [Concomitant]
     Route: 041
     Dates: start: 20090827, end: 20090827
  21. GLIMICRON [Concomitant]
     Route: 048
     Dates: start: 20090903

REACTIONS (2)
  - PANCREATITIS ACUTE [None]
  - WHITE BLOOD CELL COUNT DECREASED [None]
